FAERS Safety Report 22350316 (Version 1)
Quarter: 2023Q2

REPORT INFORMATION
  Report Type: Report from Study
  Country: CA (occurrence: CA)
  Receive Date: 20230522
  Receipt Date: 20230522
  Transmission Date: 20230722
  Serious: Yes (Hospitalization, Other)
  Sender: FDA-Public Use
  Company Number: CA-TAKEDA-2023TUS050415

PATIENT
  Age: 38 Year
  Sex: Male

DRUGS (4)
  1. HUMAN IMMUNOGLOBULIN G [Suspect]
     Active Substance: HUMAN IMMUNOGLOBULIN G
     Indication: Primary immunodeficiency syndrome
     Dosage: 10 GRAM, 1/WEEK
     Route: 058
     Dates: start: 20230306
  2. PREDNISONE [Concomitant]
     Active Substance: PREDNISONE
  3. PAROXETINE [Concomitant]
     Active Substance: PAROXETINE
  4. OLANZAPINE [Concomitant]
     Active Substance: OLANZAPINE

REACTIONS (1)
  - Pneumonia [Unknown]
